FAERS Safety Report 22165658 (Version 2)
Quarter: 2023Q2

REPORT INFORMATION
  Report Type: Other
  Country: US (occurrence: None)
  Receive Date: 20230403
  Receipt Date: 20230404
  Transmission Date: 20230721
  Serious: No
  Sender: FDA-Public Use
  Company Number: US-ROCHE-3322853

PATIENT
  Age: 43 Year
  Sex: Male
  Weight: 83.990 kg

DRUGS (1)
  1. OCREVUS [Suspect]
     Active Substance: OCRELIZUMAB
     Indication: Primary progressive multiple sclerosis
     Dosage: RECEIVES INFUSION OVER 2 TO 3 HOURS ;ONGOING: YES
     Route: 042
     Dates: start: 202003

REACTIONS (1)
  - COVID-19 [Unknown]
